FAERS Safety Report 24602317 (Version 1)
Quarter: 2024Q4

REPORT INFORMATION
  Report Type: Spontaneous
  Country: JP (occurrence: JP)
  Receive Date: 20241111
  Receipt Date: 20241111
  Transmission Date: 20250115
  Serious: Yes (Hospitalization, Other)
  Sender: GLAXOSMITHKLINE
  Company Number: JP-GSK-JP2024JPN137702

PATIENT

DRUGS (3)
  1. LAMICTAL [Suspect]
     Active Substance: LAMOTRIGINE
     Dosage: 2100 MG
  2. LITHIUM CARBONATE [Suspect]
     Active Substance: LITHIUM CARBONATE
     Dosage: 1400 MG
  3. VALPROATE [Suspect]
     Active Substance: VALPROIC ACID
     Dosage: 1400 MG

REACTIONS (5)
  - Suicide attempt [Unknown]
  - Altered state of consciousness [Recovered/Resolved]
  - Ventricular tachycardia [Unknown]
  - Toxicity to various agents [Unknown]
  - Intentional overdose [Unknown]
